FAERS Safety Report 4958336-1 (Version None)
Quarter: 2006Q1

REPORT INFORMATION
  Report Type: 
  Country: None (occurrence: None)
  Receive Date: 20060329
  Receipt Date: 20060329
  Transmission Date: 20060701
  Serious: Yes (Hospitalization)
  Sender: FDA-Public Use
  Company Number: None

PATIENT
  Age: 58 Year
  Sex: Female
  Weight: 105.7 kg

DRUGS (2)
  1. BUMETANIDE [Suspect]
     Indication: DYSPNOEA EXERTIONAL
     Dosage: 2 MG Q8H IV
     Route: 042
     Dates: start: 20060317, end: 20060318
  2. NOREPINPHRINE 4 MG/4 ML BEDFORD LABORATORIES [Suspect]
     Indication: WRONG DRUG ADMINISTERED
     Dosage: NONE ORDERED
     Dates: start: 20060317, end: 20060317

REACTIONS (6)
  - ANXIETY [None]
  - CHEST PAIN [None]
  - DRUG DISPENSING ERROR [None]
  - ELECTROCARDIOGRAM ST SEGMENT ELEVATION [None]
  - VENTRICULAR TACHYCARDIA [None]
  - WRONG DRUG ADMINISTERED [None]
